FAERS Safety Report 17157290 (Version 1)
Quarter: 2019Q4

REPORT INFORMATION
  Report Type: Spontaneous
  Country: CH (occurrence: CH)
  Receive Date: 20191216
  Receipt Date: 20191216
  Transmission Date: 20200122
  Serious: Yes (Other)
  Sender: FDA-Public Use
  Company Number: CH-ROCHE-2496605

PATIENT
  Age: 3 Year
  Sex: Male

DRUGS (4)
  1. ASPIRIN [ACETYLSALICYLIC ACID] [Concomitant]
     Active Substance: ASPIRIN
  2. AMOXICILLIN. [Concomitant]
     Active Substance: AMOXICILLIN
     Route: 048
  3. CLAVULANIC ACID [Concomitant]
     Active Substance: CLAVULANIC ACID
  4. ALTEPLASE. [Suspect]
     Active Substance: ALTEPLASE
     Indication: VENA CAVA THROMBOSIS
     Route: 065

REACTIONS (2)
  - Intracranial pressure increased [Unknown]
  - Cerebral haemorrhage [Unknown]
